FAERS Safety Report 18898801 (Version 2)
Quarter: 2021Q1

REPORT INFORMATION
  Report Type: Spontaneous
  Country: GB (occurrence: GB)
  Receive Date: 20210216
  Receipt Date: 20210224
  Transmission Date: 20210420
  Serious: Yes (Other)
  Sender: FDA-Public Use
  Company Number: GB-MYLANLABS-2021M1009508

PATIENT
  Age: 49 Year
  Sex: Male
  Weight: 87 kg

DRUGS (4)
  1. METRONIDAZOL                       /00012501/ [Interacting]
     Active Substance: METRONIDAZOLE
     Indication: ILL-DEFINED DISORDER
     Dosage: 400 MILLIGRAM
     Route: 048
     Dates: start: 20201231, end: 20210106
  2. CLARITHROMYCIN. [Suspect]
     Active Substance: CLARITHROMYCIN
     Indication: HELICOBACTER INFECTION
     Dosage: 500 MILLIGRAM
     Route: 048
     Dates: start: 20201231, end: 20210106
  3. OMEPRAZOLE. [Interacting]
     Active Substance: OMEPRAZOLE
     Indication: HELICOBACTER INFECTION
     Dosage: 20 MILLIGRAM
     Route: 048
     Dates: start: 20201231, end: 20210106
  4. METRONIDAZOL                       /00012501/ [Interacting]
     Active Substance: METRONIDAZOLE
     Indication: HELICOBACTER INFECTION

REACTIONS (5)
  - Drug interaction [Unknown]
  - Cardiac flutter [Recovered/Resolved]
  - Medication error [Unknown]
  - Arrhythmia [Recovered/Resolved]
  - Electrocardiogram QT prolonged [Recovered/Resolved]

NARRATIVE: CASE EVENT DATE: 20210103
